FAERS Safety Report 23320372 (Version 2)
Quarter: 2023Q4

REPORT INFORMATION
  Report Type: Spontaneous
  Country: US (occurrence: US)
  Receive Date: 20231220
  Receipt Date: 20231221
  Transmission Date: 20240109
  Serious: No
  Sender: FDA-Public Use
  Company Number: US-BRISTOL-MYERS SQUIBB COMPANY-2023-184882

PATIENT
  Age: 79 Year
  Sex: Female

DRUGS (1)
  1. THALOMID [Suspect]
     Active Substance: THALIDOMIDE
     Indication: Neurodermatitis
     Dosage: DOSE : 150 MG;     FREQ : QD
     Route: 048

REACTIONS (5)
  - Malaise [Unknown]
  - Headache [Unknown]
  - Sleep disorder [Unknown]
  - Pruritus [Unknown]
  - Off label use [Unknown]
